FAERS Safety Report 10726196 (Version 3)
Quarter: 2015Q3

REPORT INFORMATION
  Report Type: Spontaneous
  Country: US (occurrence: US)
  Receive Date: 20150121
  Receipt Date: 20150812
  Transmission Date: 20151125
  Serious: Yes (Disabling, Other)
  Sender: FDA-Public Use
  Company Number: US-LEO PHARMA-231734

PATIENT
  Age: 61 Year
  Sex: Female

DRUGS (1)
  1. PICATO [Suspect]
     Active Substance: INGENOL MEBUTATE
     Indication: PRECANCEROUS SKIN LESION
     Route: 061
     Dates: start: 20150102, end: 20150103

REACTIONS (14)
  - Genital cyst [Recovered/Resolved]
  - Drug administration error [Recovered/Resolved]
  - Drug administered at inappropriate site [Recovered/Resolved]
  - Erythema [Recovered/Resolved]
  - Application site exfoliation [Recovered/Resolved]
  - Visual impairment [Recovered/Resolved]
  - Application site pain [Recovered/Resolved]
  - Application site infection [Recovered/Resolved]
  - Infected cyst [Recovered/Resolved]
  - Application site inflammation [Recovered/Resolved]
  - Breast swelling [Recovered/Resolved]
  - Application site erythema [Not Recovered/Not Resolved]
  - Application site vesicles [Recovered/Resolved]
  - Application site pruritus [Recovered/Resolved]

NARRATIVE: CASE EVENT DATE: 20150103
